FAERS Safety Report 4424405-8 (Version None)
Quarter: 2004Q3

REPORT INFORMATION
  Report Type: 
  Country: None (occurrence: None)
  Receive Date: 20040812
  Receipt Date: 20040802
  Transmission Date: 20050211
  Serious: Yes (Death)
  Sender: FDA-Public Use
  Company Number: GB-JNJFOC-20040505714

PATIENT
  Sex: Male
  Weight: 126 kg

DRUGS (3)
  1. RISPERDAL CONSTA [Suspect]
     Route: 030
  2. RISPERDAL CONSTA [Suspect]
     Route: 030
  3. THYROXINE [Concomitant]
     Indication: HYPOTHYROIDISM

REACTIONS (14)
  - BACTERIA SPUTUM IDENTIFIED [None]
  - BACTERIA TISSUE SPECIMEN IDENTIFIED [None]
  - FAT NECROSIS [None]
  - GASTRITIS [None]
  - GYNAECOMASTIA [None]
  - HEADACHE [None]
  - MALE PATTERN BALDNESS [None]
  - ORAL MUCOSAL DISORDER [None]
  - PANCREATITIS ACUTE [None]
  - PANCREATITIS NECROTISING [None]
  - PULMONARY CONGESTION [None]
  - PULMONARY HAEMORRHAGE [None]
  - PULMONARY OEDEMA [None]
  - SCROTAL SWELLING [None]
